FAERS Safety Report 13464733 (Version 1)
Quarter: 2017Q2

REPORT INFORMATION
  Report Type: Spontaneous
  Country: US (occurrence: US)
  Receive Date: 20170420
  Receipt Date: 20170420
  Transmission Date: 20170830
  Serious: Yes (Other)
  Sender: FDA-Public Use
  Company Number: US-ROCHE-718491

PATIENT
  Age: 31 Year
  Sex: Female
  Weight: 56.8 kg

DRUGS (1)
  1. ACCUTANE [Suspect]
     Active Substance: ISOTRETINOIN
     Indication: SKIN REACTION
     Route: 048

REACTIONS (1)
  - Crohn^s disease [Unknown]
